FAERS Safety Report 7034710-7 (Version None)
Quarter: 2010Q4

REPORT INFORMATION
  Report Type: 
  Country: None (occurrence: None)
  Receive Date: 20101008
  Receipt Date: 20100929
  Transmission Date: 20110411
  Serious: Yes (Other)
  Sender: FDA-Public Use
  Company Number: US-JNJFOC-20100908643

PATIENT
  Sex: Female
  Weight: 68.04 kg

DRUGS (17)
  1. FENTANYL [Suspect]
     Indication: INTERVERTEBRAL DISC DEGENERATION
     Route: 062
  2. FENTANYL [Suspect]
     Dosage: 75UG + 75 UG
     Route: 062
  3. FENTANYL [Suspect]
     Indication: RHEUMATOID ARTHRITIS
     Route: 062
  4. FENTANYL [Suspect]
     Dosage: 75UG + 75 UG
     Route: 062
  5. FENTANYL [Suspect]
     Indication: PAIN
     Route: 062
  6. DURAGESIC-100 [Suspect]
     Indication: PAIN
     Route: 062
  7. SINGULAIR [Concomitant]
     Indication: ASTHMA
     Route: 048
  8. SINGULAIR [Concomitant]
     Indication: MULTIPLE ALLERGIES
     Route: 048
  9. NEXIUM [Concomitant]
     Indication: GASTROOESOPHAGEAL REFLUX DISEASE
     Route: 048
  10. BENTYL [Concomitant]
     Indication: GASTROINTESTINAL DISORDER
     Route: 048
  11. MIRALAX [Concomitant]
     Indication: GASTROINTESTINAL DISORDER
     Route: 048
  12. PHENERGAN [Concomitant]
     Indication: GASTROINTESTINAL DISORDER
     Dosage: AS NEEDED
     Route: 054
  13. PHENERGAN [Concomitant]
     Dosage: AS NEEDED
     Route: 048
  14. LOMOTIL [Concomitant]
     Indication: GASTROINTESTINAL DISORDER
     Dosage: 2.2/0.025MG/TABLET/2.5/0.025MG/DAILY/ORAL
     Route: 048
  15. PROAIR HFA [Concomitant]
     Indication: ASTHMA
     Dosage: AS NEEDED
     Route: 055
  16. SYMBICORT [Concomitant]
     Indication: ASTHMA
     Route: 055
  17. ALBUTEROL [Concomitant]
     Indication: ASTHMA
     Route: 055

REACTIONS (17)
  - COLD SWEAT [None]
  - CONFUSIONAL STATE [None]
  - DYSSTASIA [None]
  - FALL [None]
  - HYPERHIDROSIS [None]
  - INFLUENZA [None]
  - INSOMNIA [None]
  - IRRITABILITY [None]
  - LOSS OF CONSCIOUSNESS [None]
  - MALAISE [None]
  - PRODUCT ADHESION ISSUE [None]
  - PYREXIA [None]
  - RASH [None]
  - SPEECH DISORDER [None]
  - TREATMENT NONCOMPLIANCE [None]
  - VOMITING [None]
  - WRONG TECHNIQUE IN DRUG USAGE PROCESS [None]
